FAERS Safety Report 9465411 (Version 2)
Quarter: 2013Q4

REPORT INFORMATION
  Report Type: Spontaneous
  Country: US (occurrence: US)
  Receive Date: 20130820
  Receipt Date: 20131022
  Transmission Date: 20140711
  Serious: Yes (Other)
  Sender: FDA-Public Use
  Company Number: US-BIOGENIDEC-2013BI073458

PATIENT
  Age: 49 Year
  Sex: Female
  Weight: 92 kg

DRUGS (5)
  1. TECFIDERA [Suspect]
     Indication: MULTIPLE SCLEROSIS
     Dates: start: 20130712, end: 20130725
  2. TECFIDERA [Suspect]
     Indication: MULTIPLE SCLEROSIS
     Route: 048
     Dates: start: 201306, end: 20130805
  3. AVONEX [Concomitant]
     Indication: MULTIPLE SCLEROSIS
     Route: 030
     Dates: start: 20101001
  4. NORCO [Concomitant]
  5. BENADRYL [Concomitant]

REACTIONS (11)
  - Nausea [Unknown]
  - Vomiting [Unknown]
  - Migraine [Unknown]
  - Meniscus injury [Unknown]
  - Insomnia [Unknown]
  - Coordination abnormal [Unknown]
  - Dyspepsia [Unknown]
  - Constipation [Unknown]
  - Chest pain [Unknown]
  - Local swelling [Unknown]
  - Malignant melanoma [Not Recovered/Not Resolved]
